FAERS Safety Report 7437184-7 (Version None)
Quarter: 2011Q2

REPORT INFORMATION
  Report Type: 
  Country: None (occurrence: None)
  Receive Date: 20110426
  Receipt Date: 20081105
  Transmission Date: 20111010
  Serious: Yes (Death, Hospitalization, Other)
  Sender: FDA-Public Use
  Company Number: US-BAYER-201038479NA

PATIENT
  Sex: Male
  Weight: 153 kg

DRUGS (36)
  1. ALBUMIN (HUMAN) [Concomitant]
     Dosage: 1000 ML, UNK
     Dates: start: 20000403
  2. ATENOLOL [Concomitant]
     Dosage: 25-50 MG DAILY
     Route: 048
     Dates: start: 19991118, end: 20000405
  3. ALLOPURINOL [Concomitant]
     Dosage: 100-300 MG DAILY
     Route: 048
     Dates: start: 19970302, end: 20000509
  4. AUGMENTIN [Concomitant]
     Dosage: 500 MG DAILY -TWICE DAILY AS NEEDED
     Route: 048
     Dates: start: 19970302, end: 20000407
  5. BUMEX [Concomitant]
     Dosage: 2 MG EVERY 2 HOURS, 2-10 MG DAILY -THREE TIMES DAILY,DRIP AT 1 MG/HOUR ORAL, IV
     Dates: start: 20000403, end: 20000407
  6. REGULAR INSULIN [Concomitant]
     Dosage: 250 UNITS, SLIDING SCALE
     Route: 042
     Dates: start: 20000403
  7. MANNITOL [Concomitant]
     Dosage: 30 GMS PRIME
     Dates: start: 20000403
  8. EPINEPHRINE [Concomitant]
     Dosage: 4 MG/250 ML D5W
     Route: 042
     Dates: start: 20000403, end: 20000403
  9. TRASYLOL [Suspect]
     Indication: CORONARY ARTERY BYPASS
     Dosage: UNK
     Route: 042
     Dates: start: 20000403
  10. HISMANAL [Concomitant]
     Dosage: 20 MG, BID
     Route: 048
     Dates: start: 20000131, end: 20000407
  11. FRESH FROZEN PLASMA [Concomitant]
     Dosage: 4 U, UNK
     Dates: start: 20000403
  12. AVANDIA [Concomitant]
     Dosage: 4-8 MG DAILY -TWICE DAILY
     Route: 048
     Dates: start: 20000407, end: 20000509
  13. DOBUTREX [Concomitant]
     Dosage: 500-800 MG/250 ML NORMAL SALINE
     Route: 042
     Dates: start: 20000403, end: 20000508
  14. MORPHINE [Concomitant]
     Dosage: 1-5 MG EVERY 1-2 HOURS IVP
     Dates: start: 20000403, end: 20000415
  15. TRASYLOL [Suspect]
     Indication: ATRIAL SEPTAL DEFECT
     Dosage: 200 ML OVER 30 MINUTES, THEN APROTININ DRIP STARTED AT 50 ML/HOUR. PRIMING VOLUME 1,000,000 KIU APR.
     Dates: start: 20000403, end: 20000404
  16. NORVASC [Concomitant]
     Dosage: 5-10 MG DAILY - TWICE DAILY
     Route: 048
     Dates: start: 19991118, end: 20000407
  17. TOPROL-XL [Concomitant]
     Dosage: 25-50 MG DAILY -TWICE DAILY
     Route: 048
     Dates: start: 20000403, end: 20000407
  18. LEVAQUIN [Concomitant]
     Dosage: 500 MG, QD
     Dates: start: 20000403
  19. MONOKET [Concomitant]
     Dosage: 20 MG, BID
     Route: 048
     Dates: start: 19970302, end: 20000407
  20. CLAFORAN [Concomitant]
     Dosage: 1 G, TID
     Route: 042
     Dates: start: 20000412, end: 20000422
  21. REZULIN [Concomitant]
     Dosage: 400 MG, BID
     Route: 048
     Dates: start: 19991010, end: 20000407
  22. VERSED [Concomitant]
     Dosage: 1-2 MG
     Route: 042
     Dates: start: 20000403, end: 20000403
  23. TRASYLOL [Suspect]
     Indication: INTRA-AORTIC BALLOON PLACEMENT
     Dosage: 10,000 KALLIKREIN INHIBITOR UNITS/ML 450 ML AT 50 ML/HOUR
     Route: 042
     Dates: start: 20000403, end: 20000404
  24. PLATELETS [Concomitant]
     Dosage: 200 ML, UNK
     Dates: start: 20000403
  25. CARDENE [Concomitant]
     Dosage: 20-30 MG TWICE DAILY
     Route: 048
     Dates: start: 19970302, end: 20000403
  26. HEPARIN [Concomitant]
     Dosage: 300-2800 UNITS/HOUR
     Route: 042
     Dates: start: 20000403, end: 20000412
  27. LASIX [Concomitant]
     Dosage: 40-80 MG DAILY -TWICE DAILY
     Route: 042
     Dates: start: 19970302, end: 20000407
  28. DIURIL [Concomitant]
     Dosage: 250-500 MG EVERY 12 HOURS
     Route: 042
     Dates: start: 20000404, end: 20000502
  29. RED BLOOD CELLS [Concomitant]
     Dosage: 4 U, UNK
     Dates: start: 20000403
  30. VIOXX [Concomitant]
     Dosage: 25 MG, HS
     Route: 048
     Dates: start: 20000116, end: 20000407
  31. PRINIVIL [Concomitant]
     Dosage: 5-20 MG DAILY -TWICE DAILY
     Route: 048
     Dates: start: 19970302, end: 20000423
  32. GLYNASE [Concomitant]
     Dosage: 6 MG, BID
     Route: 048
     Dates: start: 19970302, end: 20000407
  33. LEVOPHED [Concomitant]
     Dosage: 8 MG, UNK
     Route: 042
     Dates: start: 20000403, end: 20000404
  34. KEFZOL [Concomitant]
     Dosage: 2 G, UNK
     Route: 042
     Dates: start: 20000403, end: 20000405
  35. PROTAMINE SULFATE [Concomitant]
     Dosage: 50 MG, UNK
     Route: 042
     Dates: start: 20000403, end: 20000403
  36. NITROGLYCERIN [Concomitant]
     Dosage: UNK
     Route: 042
     Dates: start: 20000403

REACTIONS (13)
  - RENAL INJURY [None]
  - SEPSIS [None]
  - ARTERIOSCLEROSIS CORONARY ARTERY [None]
  - PERIPHERAL VASCULAR DISORDER [None]
  - RENAL IMPAIRMENT [None]
  - ANXIETY [None]
  - MULTI-ORGAN FAILURE [None]
  - INJURY [None]
  - STRESS [None]
  - FEAR [None]
  - RENAL FAILURE [None]
  - UNEVALUABLE EVENT [None]
  - PAIN [None]
